FAERS Safety Report 4379824-5 (Version None)
Quarter: 2004Q2

REPORT INFORMATION
  Report Type: 
  Country: None (occurrence: None)
  Receive Date: 20040614
  Receipt Date: 20040601
  Transmission Date: 20050107
  Serious: Yes (Disabling, Other)
  Sender: FDA-Public Use
  Company Number: 2004036523

PATIENT
  Age: 62 Year
  Sex: Female
  Weight: 79.3795 kg

DRUGS (6)
  1. NEURONTIN [Suspect]
     Indication: FIBROMYALGIA
     Dosage: 3200 MG (800 MG, QID), ORAL
     Route: 048
  2. AMITRIPTYLINE HCL [Concomitant]
  3. PIOGLITAZONE HCL [Concomitant]
  4. GLIBOMET (GLIBENCLAMIDE, METFORMIN HYDROCHLORIDE) [Concomitant]
  5. SIMVASTATIN [Concomitant]
  6. THYROID TAB [Concomitant]

REACTIONS (2)
  - CONDITION AGGRAVATED [None]
  - FIBROMYALGIA [None]
